FAERS Safety Report 12299215 (Version 1)
Quarter: 2016Q2

REPORT INFORMATION
  Report Type: Report from Study
  Country: PA (occurrence: PA)
  Receive Date: 20160425
  Receipt Date: 20160425
  Transmission Date: 20160815
  Serious: Yes (Hospitalization, Other)
  Sender: FDA-Public Use
  Company Number: PHHY2016PA052375

PATIENT
  Age: 54 Year
  Sex: Female

DRUGS (2)
  1. EXEMESTANE. [Concomitant]
     Active Substance: EXEMESTANE
     Indication: PRODUCT USED FOR UNKNOWN INDICATION
     Dosage: 25 MG, UNK
     Route: 065
     Dates: start: 20160401
  2. AFINITOR [Suspect]
     Active Substance: EVEROLIMUS
     Indication: PRODUCT USED FOR UNKNOWN INDICATION
     Dosage: 10 MG, UNK
     Route: 065

REACTIONS (15)
  - Pain [Unknown]
  - Skin irritation [Unknown]
  - Pruritus [Unknown]
  - Impaired healing [Unknown]
  - Scab [Unknown]
  - Asthenia [Unknown]
  - Arthralgia [Unknown]
  - Epistaxis [Unknown]
  - Metastases to lung [Unknown]
  - Oedema peripheral [Unknown]
  - Wound complication [Unknown]
  - Metastases to bone [Unknown]
  - Fatigue [Unknown]
  - Chest pain [Unknown]
  - Pulmonary oedema [Unknown]

NARRATIVE: CASE EVENT DATE: 2015
